FAERS Safety Report 12188169 (Version 6)
Quarter: 2017Q2

REPORT INFORMATION
  Report Type: Spontaneous
  Country: US (occurrence: US)
  Receive Date: 20160317
  Receipt Date: 20170523
  Transmission Date: 20170830
  Serious: Yes (Life-Threatening, Hospitalization, Other)
  Sender: FDA-Public Use
  Company Number: US-JNJFOC-20160313046

PATIENT
  Age: 9 Year
  Sex: Female

DRUGS (2)
  1. CONCERTA [Suspect]
     Active Substance: METHYLPHENIDATE HYDROCHLORIDE
     Indication: ATTENTION DEFICIT/HYPERACTIVITY DISORDER
     Route: 048
     Dates: start: 20130228
  2. CONCERTA [Suspect]
     Active Substance: METHYLPHENIDATE HYDROCHLORIDE
     Indication: ATTENTION DEFICIT/HYPERACTIVITY DISORDER
     Route: 048
     Dates: start: 20121207, end: 20130228

REACTIONS (5)
  - Quadriplegia [Unknown]
  - Intentional self-injury [Recovering/Resolving]
  - Hypoxic-ischaemic encephalopathy [Unknown]
  - Scoliosis [Recovering/Resolving]
  - Asphyxia [Unknown]

NARRATIVE: CASE EVENT DATE: 2013
